FAERS Safety Report 6156028-7 (Version None)
Quarter: 2009Q2

REPORT INFORMATION
  Report Type: 
  Country: None (occurrence: None)
  Receive Date: 20090413
  Receipt Date: 20090413
  Transmission Date: 20091009
  Serious: Yes (Life-Threatening)
  Sender: FDA-Public Use
  Company Number: None

PATIENT
  Age: 58 Year
  Sex: Female
  Weight: 113.3993 kg

DRUGS (2)
  1. ADVAIR DISKUS 500/50 [Suspect]
     Indication: CHRONIC OBSTRUCTIVE PULMONARY DISEASE
     Dosage: ONE PUFF BY MOUTH 12 HOURS APART INHAL ORDERED TO CONTINUE USE
     Route: 055
     Dates: start: 20090329, end: 20090410
  2. ADVAIR DISKUS 500/50 [Suspect]
     Indication: DYSPNOEA
     Dosage: ONE PUFF BY MOUTH 12 HOURS APART INHAL ORDERED TO CONTINUE USE
     Route: 055
     Dates: start: 20090329, end: 20090410

REACTIONS (5)
  - DRUG INEFFECTIVE [None]
  - HEADACHE [None]
  - NAUSEA [None]
  - PHARYNGEAL HAEMORRHAGE [None]
  - VOMITING [None]
